FAERS Safety Report 6078202-0 (Version None)
Quarter: 2009Q1

REPORT INFORMATION
  Report Type: 
  Country: None (occurrence: None)
  Receive Date: 20090213
  Receipt Date: 20090205
  Transmission Date: 20090719
  Serious: Yes (Other)
  Sender: FDA-Public Use
  Company Number: PHHY2009BR04318

PATIENT
  Sex: Male

DRUGS (2)
  1. TRILEPTAL [Suspect]
     Dosage: 6 % 100 ML
     Route: 048
  2. TRILEPTAL [Suspect]

REACTIONS (5)
  - DYSPHAGIA [None]
  - EATING DISORDER [None]
  - GASTROSTOMY [None]
  - REFLUX GASTRITIS [None]
  - WEIGHT DECREASED [None]
